FAERS Safety Report 17807433 (Version 1)
Quarter: 2020Q2

REPORT INFORMATION
  Report Type: Spontaneous
  Country: JP (occurrence: JP)
  Receive Date: 20200520
  Receipt Date: 20200520
  Transmission Date: 20200714
  Serious: Yes (Other)
  Sender: FDA-Public Use
  Company Number: JP-BEH-2020117366

PATIENT
  Age: 37 Year
  Sex: Male

DRUGS (2)
  1. HEPARIN [Concomitant]
     Active Substance: HEPARIN SODIUM
     Route: 065
  2. HUMAN IMMUNOGLOBULIN (INN) [Suspect]
     Active Substance: HUMAN IMMUNOGLOBULIN G
     Indication: BICKERSTAFF^S ENCEPHALITIS
     Dosage: UNK
     Route: 042

REACTIONS (6)
  - Product use in unapproved indication [Unknown]
  - Pulmonary embolism [Recovered/Resolved]
  - Chest pain [Recovered/Resolved]
  - No adverse event [Unknown]
  - Atrial thrombosis [Recovered/Resolved]
  - Pulmonary hypertension [Recovered/Resolved]
